FAERS Safety Report 6133908-X (Version None)
Quarter: 2009Q1

REPORT INFORMATION
  Report Type: 
  Country: None (occurrence: None)
  Receive Date: 20090326
  Receipt Date: 20090316
  Transmission Date: 20090719
  Serious: Yes (Death)
  Sender: FDA-Public Use
  Company Number: JP-ABBOTT-09P-087-0564429-00

PATIENT
  Age: 88 Year
  Sex: Male

DRUGS (5)
  1. LEUPLIN SR FOR INJECTION 11.25 MG [Suspect]
     Indication: PROSTATE CANCER STAGE IV
     Route: 058
     Dates: start: 20070118, end: 20080407
  2. CASODEX [Concomitant]
     Indication: PROSTATE CANCER STAGE IV
     Route: 048
     Dates: end: 20071227
  3. NORVASC [Concomitant]
     Indication: HYPERTENSION
     Route: 048
     Dates: end: 20080407
  4. FASTIC [Concomitant]
     Indication: DIABETES MELLITUS
     Route: 048
     Dates: end: 20080407
  5. FLUTAMIDE [Concomitant]
     Indication: PROSTATE CANCER STAGE IV
     Route: 048
     Dates: start: 20071228, end: 20080407

REACTIONS (1)
  - PROSTATE CANCER [None]
